FAERS Safety Report 16970735 (Version 1)
Quarter: 2019Q4

REPORT INFORMATION
  Report Type: Spontaneous
  Country: US (occurrence: US)
  Receive Date: 20190912
  Receipt Date: 20190912
  Transmission Date: 20200122
  Serious: Yes (Other)
  Sender: FDA-Public Use
  Company Number: None

PATIENT
  Age: 47 Year
  Sex: Female
  Weight: 74.39 kg

DRUGS (1)
  1. TOPIRAMATE 200MG [Suspect]
     Active Substance: TOPIRAMATE
     Indication: EPILEPSY
     Route: 048
     Dates: start: 201412, end: 201501

REACTIONS (6)
  - Panic attack [None]
  - Epileptic aura [None]
  - Photophobia [None]
  - Product substitution issue [None]
  - Anxiety [None]
  - Blepharospasm [None]

NARRATIVE: CASE EVENT DATE: 201901
